FAERS Safety Report 7791729-6 (Version None)
Quarter: 2011Q4

REPORT INFORMATION
  Report Type: 
  Country: None (occurrence: None)
  Receive Date: 20111003
  Receipt Date: 20110928
  Transmission Date: 20120403
  Serious: Yes (Death)
  Sender: FDA-Public Use
  Company Number: JP-SANOFI-AVENTIS-2011SA052016

PATIENT
  Age: 66 Year
  Sex: Male

DRUGS (9)
  1. FLUOROURACIL [Suspect]
     Route: 065
  2. LEUCOVORIN CALCIUM [Suspect]
     Route: 065
  3. OXALIPLATIN [Suspect]
     Route: 065
  4. FLUOROURACIL [Suspect]
     Route: 065
  5. BEVACIZUMAB [Suspect]
     Route: 065
  6. LEUCOVORIN CALCIUM [Suspect]
     Route: 065
  7. OXALIPLATIN [Suspect]
     Route: 065
  8. BEVACIZUMAB [Suspect]
     Route: 065
  9. WARFARIN SODIUM [Concomitant]
     Indication: ANTICOAGULANT THERAPY

REACTIONS (3)
  - LOBAR PNEUMONIA [None]
  - INTERSTITIAL LUNG DISEASE [None]
  - MULTI-ORGAN FAILURE [None]
